FAERS Safety Report 5366249-9 (Version None)
Quarter: 2007Q2

REPORT INFORMATION
  Report Type: 
  Country: None (occurrence: None)
  Receive Date: 20070620
  Receipt Date: 20070620
  Transmission Date: 20071010
  Serious: Yes (Hospitalization)
  Sender: FDA-Public Use
  Company Number: None

PATIENT
  Sex: Female
  Weight: 103.8 kg

DRUGS (3)
  1. CISPLATIN [Suspect]
     Dosage: 100 MG
  2. TOPOTECAN [Suspect]
     Dosage: 1.2 MG
  3. LOVENOX [Concomitant]

REACTIONS (5)
  - BLOOD POTASSIUM DECREASED [None]
  - HAEMATOCRIT DECREASED [None]
  - HAEMOGLOBIN DECREASED [None]
  - NEUTROPENIA [None]
  - WHITE BLOOD CELL COUNT DECREASED [None]
